FAERS Safety Report 8917709 (Version 1)
Quarter: 2012Q4

REPORT INFORMATION
  Report Type: 
  Country: US (occurrence: US)
  Receive Date: 20121119
  Receipt Date: 20121119
  Transmission Date: 20130627
  Serious: No
  Sender: FDA-Public Use
  Company Number: US-009507513-1211USA003794

PATIENT
  Sex: Male

DRUGS (1)
  1. CLARITIN [Suspect]
     Indication: PRODUCT USED FOR UNKNOWN INDICATION
     Dosage: UNK, bid
     Route: 048
     Dates: start: 20120826, end: 20120827

REACTIONS (3)
  - Accidental overdose [Unknown]
  - Drug administered to patient of inappropriate age [Unknown]
  - Off label use [Unknown]
